FAERS Safety Report 6054510-4 (Version None)
Quarter: 2009Q1

REPORT INFORMATION
  Report Type: 
  Country: None (occurrence: None)
  Receive Date: 20090127
  Receipt Date: 20090112
  Transmission Date: 20090719
  Serious: Yes (Hospitalization)
  Sender: FDA-Public Use
  Company Number: DE-GENENTECH-272216

PATIENT
  Sex: Female

DRUGS (6)
  1. BEVACIZUMAB [Suspect]
     Indication: BREAST CANCER METASTATIC
     Dosage: 10 MG/KG, UNK
     Route: 042
     Dates: start: 20081001, end: 20081105
  2. TAXOL [Suspect]
     Indication: BREAST CANCER METASTATIC
     Dosage: 90 MG/M2, UNK
     Route: 042
     Dates: start: 20081001, end: 20081105
  3. KEVATRIL [Concomitant]
     Indication: DRUG USE FOR UNKNOWN INDICATION
  4. FORTECORTIN [Concomitant]
     Indication: DRUG USE FOR UNKNOWN INDICATION
  5. RANITIDINE [Concomitant]
     Indication: DRUG USE FOR UNKNOWN INDICATION
  6. FENISTIL [Concomitant]
     Indication: DRUG USE FOR UNKNOWN INDICATION

REACTIONS (2)
  - DIVERTICULITIS [None]
  - FEMALE GENITAL TRACT FISTULA [None]
